FAERS Safety Report 16885787 (Version 2)
Quarter: 2019Q4

REPORT INFORMATION
  Report Type: Report from Study
  Country: US (occurrence: US)
  Receive Date: 20191004
  Receipt Date: 20191203
  Transmission Date: 20200122
  Serious: Yes (Death)
  Sender: FDA-Public Use
  Company Number: US-BAUSCH-BL-2019-056604

PATIENT
  Age: 71 Year
  Sex: Female
  Weight: 81.72 kg

DRUGS (1)
  1. XIFAXAN [Suspect]
     Active Substance: RIFAXIMIN
     Indication: PRODUCT USED FOR UNKNOWN INDICATION
     Route: 048
     Dates: end: 20190918

REACTIONS (2)
  - Chronic obstructive pulmonary disease [Fatal]
  - Hospice care [Unknown]

NARRATIVE: CASE EVENT DATE: 20190916
